FAERS Safety Report 6938251-4 (Version None)
Quarter: 2010Q3

REPORT INFORMATION
  Report Type: 
  Country: None (occurrence: None)
  Receive Date: 20100824
  Receipt Date: 20100604
  Transmission Date: 20110219
  Serious: No
  Sender: FDA-Public Use
  Company Number: A0863079A

PATIENT
  Age: 24 Year
  Sex: Female

DRUGS (4)
  1. MALARONE [Suspect]
     Indication: MALARIA PROPHYLAXIS
     Route: 048
     Dates: start: 20100501
  2. BIRTH CONTROL [Concomitant]
  3. NON-GSK H1N1 VACCINE [Concomitant]
  4. FLU SHOT [Concomitant]

REACTIONS (5)
  - DRUG INEFFECTIVE [None]
  - MALARIA [None]
  - NAUSEA [None]
  - PYREXIA [None]
  - URTICARIA [None]
